FAERS Safety Report 10626214 (Version 1)
Quarter: 2014Q4

REPORT INFORMATION
  Report Type: Spontaneous
  Country: US (occurrence: US)
  Receive Date: 20141204
  Receipt Date: 20141204
  Transmission Date: 20150529
  Serious: Yes (Other)
  Sender: FDA-Public Use
  Company Number: US-ACTAVIS-2014-26059

PATIENT
  Sex: Male

DRUGS (2)
  1. CLEOCIN HYDROCHLORIDE [Suspect]
     Active Substance: CLINDAMYCIN HYDROCHLORIDE
     Indication: BETA HAEMOLYTIC STREPTOCOCCAL INFECTION
  2. CLEOCIN HYDROCHLORIDE [Suspect]
     Active Substance: CLINDAMYCIN HYDROCHLORIDE
     Indication: ABSCESS LIMB
     Dosage: 600 MG, Q8H
     Route: 042

REACTIONS (2)
  - Pathogen resistance [Unknown]
  - Drug ineffective [Unknown]
